FAERS Safety Report 10071735 (Version 1)
Quarter: 2014Q2

REPORT INFORMATION
  Report Type: Spontaneous
  Country: US (occurrence: US)
  Receive Date: 20140411
  Receipt Date: 20140411
  Transmission Date: 20141212
  Serious: Yes (Other)
  Sender: FDA-Public Use
  Company Number: US-BEH-2014041672

PATIENT
  Age: 35 Year
  Sex: Female

DRUGS (6)
  1. IVIG [Suspect]
     Indication: AUTOIMMUNE DISORDER
     Route: 042
  2. IVIG [Suspect]
     Indication: AUTOIMMUNE DISORDER
     Route: 042
  3. LEVETIRACETAM (KEPPRA) [Concomitant]
     Indication: EPILEPSY
  4. LEVETIRACETAM (KEPPRA) [Concomitant]
     Indication: AUTOIMMUNE DISORDER
  5. PHENOBARBITAL (LUMINAL) [Concomitant]
     Indication: EPILEPSY
  6. PHENOBARBITAL (LUMINAL) [Concomitant]
     Indication: AUTOIMMUNE DISORDER

REACTIONS (2)
  - Embolism [Unknown]
  - Drug effect incomplete [Recovering/Resolving]
